FAERS Safety Report 8995923 (Version 2)
Quarter: 2013Q4

REPORT INFORMATION
  Report Type: Report from Study
  Country: DE (occurrence: DE)
  Receive Date: 20130103
  Receipt Date: 20131022
  Transmission Date: 20140711
  Serious: Yes (Hospitalization)
  Sender: FDA-Public Use
  Company Number: DE-TEVA-378066GER

PATIENT
  Age: 38 Year
  Sex: Female
  Weight: 59 kg

DRUGS (5)
  1. NPLD [Suspect]
     Indication: BREAST CANCER
     Route: 042
     Dates: start: 20121024
  2. PACLITAXEL [Suspect]
     Indication: BREAST CANCER
     Route: 042
     Dates: start: 20121024
  3. CARBOPLATIN [Suspect]
     Indication: BREAST CANCER
     Dosage: AUC 2
     Route: 042
     Dates: start: 20121024
  4. HERCEPTIN [Suspect]
     Indication: BREAST CANCER
     Route: 042
     Dates: start: 20121024
  5. LAPATINIB [Suspect]
     Indication: BREAST CANCER
     Dosage: 750 MILLIGRAM DAILY;
     Route: 048
     Dates: start: 20121024, end: 20121221

REACTIONS (2)
  - Pyelonephritis [Recovered/Resolved]
  - Nausea [Recovered/Resolved]
